FAERS Safety Report 23905406 (Version 1)
Quarter: 2024Q2

REPORT INFORMATION
  Report Type: Other
  Country: ZA (occurrence: None)
  Receive Date: 20240527
  Receipt Date: 20240527
  Transmission Date: 20240715
  Serious: No
  Sender: FDA-Public Use
  Company Number: ZA-ROCHE-3348220

PATIENT
  Sex: Female

DRUGS (6)
  1. OCREVUS [Suspect]
     Active Substance: OCRELIZUMAB
     Indication: Relapsing-remitting multiple sclerosis
     Dosage: THEREAFTER 600MG EVERY 6 MONTHS
     Route: 041
     Dates: start: 202211
  2. OCREVUS [Suspect]
     Active Substance: OCRELIZUMAB
     Dosage: THEREAFTER 600MG EVERY 6 MONTHS
     Route: 041
     Dates: start: 20221209
  3. REBIF [Concomitant]
     Active Substance: INTERFERON BETA-1A
     Dates: start: 2017
  4. SOLU-MEDROL [Concomitant]
     Active Substance: METHYLPREDNISOLONE SODIUM SUCCINATE
     Indication: Gait disturbance
  5. PREDNISONE [Concomitant]
     Active Substance: PREDNISONE
  6. FINGOLIMOD [Concomitant]
     Active Substance: FINGOLIMOD

REACTIONS (17)
  - Muscular weakness [Unknown]
  - Muscle spasticity [Unknown]
  - Tremor [Unknown]
  - Hypoaesthesia [Unknown]
  - Romberg test positive [Unknown]
  - Expanded disability status scale score increased [Unknown]
  - Decreased vibratory sense [Unknown]
  - Gait spastic [Unknown]
  - Gait disturbance [Recovering/Resolving]
  - Muscle spasticity [Unknown]
  - Tremor [Unknown]
  - Bradykinesia [Unknown]
  - Hypoaesthesia [Unknown]
  - Romberg test positive [Unknown]
  - Bradykinesia [Unknown]
  - Illness [Recovered/Resolved]
  - COVID-19 [Unknown]
